FAERS Safety Report 7813396-5 (Version None)
Quarter: 2011Q4

REPORT INFORMATION
  Report Type: 
  Country: None (occurrence: None)
  Receive Date: 20111014
  Receipt Date: 20111007
  Transmission Date: 20120403
  Serious: Yes (Hospitalization, Other)
  Sender: FDA-Public Use
  Company Number: DE-AMGEN-DEUSP2011037077

PATIENT
  Age: 69 Year
  Sex: Male

DRUGS (2)
  1. ENBREL [Suspect]
     Indication: RHEUMATOID ARTHRITIS
     Dosage: 50 MG, WEEKLY
     Dates: start: 20060601
  2. CORTISONE ACETATE [Concomitant]
     Dosage: 7.5 ML, UNK DAILY

REACTIONS (4)
  - INFLAMMATION [None]
  - PAIN [None]
  - GASTROINTESTINAL DISORDER [None]
  - NAUSEA [None]
